FAERS Safety Report 11809857 (Version 1)
Quarter: 2015Q4

REPORT INFORMATION
  Report Type: Spontaneous
  Country: ES (occurrence: ES)
  Receive Date: 20151208
  Receipt Date: 20151208
  Transmission Date: 20160305
  Serious: Yes (Other)
  Sender: FDA-Public Use
  Company Number: ES-AMGEN-ESPSP2015129365

PATIENT
  Age: 52 Year
  Sex: Male

DRUGS (4)
  1. ENBREL [Suspect]
     Active Substance: ETANERCEPT
     Indication: RHEUMATOID ARTHRITIS
     Dosage: 50 MG, WEEKLY
     Route: 058
  2. ENALAPRIL [Concomitant]
     Active Substance: ENALAPRIL
     Indication: HYPERTENSION
     Dosage: 10 MG, 1X/DAY
  3. SIMVASTATIN. [Concomitant]
     Active Substance: SIMVASTATIN
     Indication: HYPERCHOLESTEROLAEMIA
     Dosage: 40 MG, 1X/DAY
  4. ADIRO [Concomitant]
     Active Substance: ASPIRIN
     Indication: VARICOSE VEIN
     Dosage: 100 MG, 1X/DAY

REACTIONS (2)
  - Blood pressure increased [Unknown]
  - Dizziness [Unknown]

NARRATIVE: CASE EVENT DATE: 20151123
